FAERS Safety Report 10648131 (Version 1)
Quarter: 2014Q4

REPORT INFORMATION
  Report Type: Spontaneous
  Country: CH (occurrence: CH)
  Receive Date: 20141212
  Receipt Date: 20141212
  Transmission Date: 20150529
  Serious: Yes (Hospitalization, Other)
  Sender: FDA-Public Use
  Company Number: CH-TEVA-526909ISR

PATIENT
  Age: 71 Year
  Sex: Male
  Weight: 68 kg

DRUGS (2)
  1. CO-AMOXI-MEPHA 625 LACTAB [Suspect]
     Active Substance: AMOXICILLIN\CLAVULANIC ACID
     Indication: FACIAL BONES FRACTURE
     Dosage: 3 DOSAGE FORMS DAILY; 1 DF = 500 MG AMOXICILLIN AND 125 MG CLAVULANIC ACID
     Route: 048
     Dates: start: 20140920, end: 20140925
  2. LAMICTAL [Suspect]
     Active Substance: LAMOTRIGINE
     Indication: PARTIAL SEIZURES
     Dosage: 50 MILLIGRAM DAILY;
     Route: 048
     Dates: start: 20141010, end: 20141024

REACTIONS (4)
  - Jaundice [Recovering/Resolving]
  - Pyrexia [Recovered/Resolved]
  - Epilepsy [Unknown]
  - Hepatitis cholestatic [Recovering/Resolving]

NARRATIVE: CASE EVENT DATE: 201410
